FAERS Safety Report 5462982-9 (Version None)
Quarter: 2007Q3

REPORT INFORMATION
  Report Type: 
  Country: None (occurrence: None)
  Receive Date: 20070918
  Receipt Date: 20070918
  Transmission Date: 20080115
  Serious: Yes (Hospitalization)
  Sender: FDA-Public Use
  Company Number: None

PATIENT
  Sex: Male
  Weight: 90.8 kg

DRUGS (5)
  1. CYCLOPHOSPHAMIDE [Suspect]
     Dosage: 420 MG
     Dates: start: 20070420
  2. DEXAMETHASONE [Suspect]
     Dosage: 21 MG
  3. LEUCOVORIN CALCIUM [Suspect]
     Dosage: 52.5 MG
  4. METHOTREXATE [Suspect]
     Dosage: 52.5 MG
  5. VINCRISTINE SULFATE [Suspect]
     Dosage: 2 MG

REACTIONS (1)
  - RENAL FAILURE ACUTE [None]
